FAERS Safety Report 6381598-3 (Version None)
Quarter: 2009Q3

REPORT INFORMATION
  Report Type: 
  Country: None (occurrence: None)
  Receive Date: 20090925
  Receipt Date: 20090915
  Transmission Date: 20100115
  Serious: Yes (Other)
  Sender: FDA-Public Use
  Company Number: GXKR2009ES10316

PATIENT
  Age: 68 Year
  Sex: Female

DRUGS (11)
  1. MIRTAZAPINE [Suspect]
     Indication: DEPRESSION
     Dosage: 30 MG, DAILY,
  2. TACROLIMUS [Suspect]
     Indication: IMMUNOSUPPRESSION
     Dosage: 0.2 MG/KG,
     Dates: start: 20081101
  3. SEVELAMER (SEVELAMER) [Concomitant]
  4. ASPIRIN [Concomitant]
  5. OMEPRAZOLE [Concomitant]
  6. PRAVASTATIN [Concomitant]
  7. LEVOTHYROXINE SODIUM [Concomitant]
  8. BROMAZEPAM (BROMAZEPAM) [Concomitant]
  9. BASILIXIMAB (BASILIXIMAB) [Concomitant]
  10. MYCOPHENOLATE MOFETIL [Concomitant]
  11. CORTICOSTEROIDS (NO INGREDIENTS/SUBSTANCES) [Concomitant]

REACTIONS (2)
  - DRUG INTERACTION [None]
  - HYPOTENSION [None]
